FAERS Safety Report 20823826 (Version 1)
Quarter: 2022Q2

REPORT INFORMATION
  Report Type: Spontaneous
  Country: DE (occurrence: DE)
  Receive Date: 20220513
  Receipt Date: 20220513
  Transmission Date: 20220721
  Serious: Yes (Disabling)
  Sender: FDA-Public Use
  Company Number: DE-SA-SAC20220511001000

PATIENT
  Age: 56 Year
  Sex: Male

DRUGS (1)
  1. DUPIXENT [Suspect]
     Active Substance: DUPILUMAB
     Indication: Asthma
     Dosage: 200 MG, QOW
     Route: 058
     Dates: start: 202011, end: 20220501

REACTIONS (12)
  - Impaired work ability [Unknown]
  - Dizziness [Not Recovered/Not Resolved]
  - Visual impairment [Not Recovered/Not Resolved]
  - Condition aggravated [Not Recovered/Not Resolved]
  - Balance disorder [Not Recovered/Not Resolved]
  - Condition aggravated [Not Recovered/Not Resolved]
  - Stress [Not Recovered/Not Resolved]
  - Blood pressure fluctuation [Unknown]
  - Pulse pressure abnormal [Unknown]
  - Peripheral swelling [Unknown]
  - Arthralgia [Unknown]
  - Oral herpes [Not Recovered/Not Resolved]

NARRATIVE: CASE EVENT DATE: 20220428
